APPROVED DRUG PRODUCT: CIMETIDINE
Active Ingredient: CIMETIDINE
Strength: 300MG
Dosage Form/Route: TABLET;ORAL
Application: A074250 | Product #002
Applicant: SANDOZ INC
Approved: Jun 29, 1995 | RLD: No | RS: No | Type: DISCN